FAERS Safety Report 4578236-9 (Version None)
Quarter: 2005Q1

REPORT INFORMATION
  Report Type: 
  Country: None (occurrence: None)
  Receive Date: 20050211
  Receipt Date: 20050203
  Transmission Date: 20050727
  Serious: Yes (Other)
  Sender: FDA-Public Use
  Company Number: US-JNJFOC-20050201579

PATIENT
  Sex: Male

DRUGS (7)
  1. CONCERTA [Suspect]
     Route: 049
     Dates: start: 20041001
  2. CONCERTA [Suspect]
     Route: 049
     Dates: start: 20041001
  3. PAXIL [Concomitant]
  4. NEXIUM [Concomitant]
  5. ALLOPURINOL [Concomitant]
  6. VERAPAMIL [Concomitant]
  7. ZYRTEC [Concomitant]

REACTIONS (1)
  - INTRAOCULAR PRESSURE INCREASED [None]
